FAERS Safety Report 5472854-1 (Version None)
Quarter: 2007Q4

REPORT INFORMATION
  Report Type: 
  Country: None (occurrence: None)
  Receive Date: 20071001
  Receipt Date: 20070926
  Transmission Date: 20080405
  Serious: Yes (Death)
  Sender: FDA-Public Use
  Company Number: A0684364A

PATIENT
  Age: 79 Year
  Sex: Female

DRUGS (7)
  1. TYKERB [Suspect]
     Indication: BREAST CANCER
     Dosage: 1000MG PER DAY
     Route: 048
     Dates: start: 20070701, end: 20070923
  2. ARICEPT [Concomitant]
  3. PLAVIX [Concomitant]
  4. POTASSIUM CHLORIDE [Concomitant]
  5. FEMARA [Concomitant]
  6. ATIVAN [Concomitant]
  7. MORPHINE [Concomitant]
     Route: 042

REACTIONS (1)
  - CARDIAC ARREST [None]
